FAERS Safety Report 15125837 (Version 1)
Quarter: 2018Q3

REPORT INFORMATION
  Report Type: Spontaneous
  Country: US (occurrence: US)
  Receive Date: 20180614
  Receipt Date: 20180614
  Transmission Date: 20181010
  Serious: Yes (Hospitalization)
  Sender: FDA-Public Use
  Company Number: None

PATIENT
  Age: 48 Year
  Sex: Female
  Weight: 60.3 kg

DRUGS (7)
  1. BENZTROPINE 2MG [Concomitant]
     Dates: start: 20180201
  2. TRAZODONE [Concomitant]
     Active Substance: TRAZODONE HYDROCHLORIDE
     Dates: start: 20180403
  3. TOPIRAMATE. [Concomitant]
     Active Substance: TOPIRAMATE
     Dates: start: 20180328
  4. PERPHENAZINE 4MG [Concomitant]
     Dates: start: 20180411
  5. ALYACEN 1/35 [Suspect]
     Active Substance: ETHINYL ESTRADIOL\NORETHINDRONE
     Indication: ORAL CONTRACEPTION
     Route: 048
     Dates: start: 20180506, end: 20180612
  6. PALIPERIDONE 6MG [Concomitant]
     Dates: start: 20180427, end: 20180515
  7. DIVALPROEX ER 500MG [Concomitant]
     Dates: start: 20180222, end: 20180513

REACTIONS (1)
  - Pulmonary embolism [None]

NARRATIVE: CASE EVENT DATE: 20180512
